FAERS Safety Report 12957392 (Version 1)
Quarter: 2016Q4

REPORT INFORMATION
  Report Type: Spontaneous
  Country: US (occurrence: US)
  Receive Date: 20161118
  Receipt Date: 20161118
  Transmission Date: 20170207
  Serious: Yes (Other)
  Sender: FDA-Public Use
  Company Number: US-BAYER-2016-216338

PATIENT
  Age: 37 Year
  Sex: Female

DRUGS (1)
  1. MAGNEVIST [Suspect]
     Active Substance: GADOPENTETATE DIMEGLUMINE
     Indication: NUCLEAR MAGNETIC RESONANCE IMAGING
     Dosage: 20 ML, ONCE
     Dates: start: 20160614, end: 20160614

REACTIONS (8)
  - Medical device removal [None]
  - Skin discolouration [Unknown]
  - Overdose [Unknown]
  - Arthralgia [Unknown]
  - Dizziness [Unknown]
  - Eye irritation [Unknown]
  - Formication [Unknown]
  - Malaise [Unknown]

NARRATIVE: CASE EVENT DATE: 201606
